FAERS Safety Report 10554280 (Version 3)
Quarter: 2015Q3

REPORT INFORMATION
  Report Type: Spontaneous
  Country: US (occurrence: US)
  Receive Date: 20141030
  Receipt Date: 20150807
  Transmission Date: 20151125
  Serious: Yes (Hospitalization)
  Sender: FDA-Public Use
  Company Number: US-PFIZER INC-2014296566

PATIENT
  Age: 75 Year
  Sex: Male
  Weight: 70 kg

DRUGS (1)
  1. INLYTA [Suspect]
     Active Substance: AXITINIB
     Indication: RENAL CELL CARCINOMA
     Dosage: 3 MG (3 TABLETS OF 1 MG), 2X/DAY
     Route: 048
     Dates: start: 201407, end: 2014

REACTIONS (6)
  - Cyst [Unknown]
  - Arthritis [Unknown]
  - Gout [Unknown]
  - Infected cyst [Unknown]
  - Gait disturbance [Unknown]
  - Epistaxis [Not Recovered/Not Resolved]

NARRATIVE: CASE EVENT DATE: 20141023
